FAERS Safety Report 23874898 (Version 1)
Quarter: 2024Q2

REPORT INFORMATION
  Report Type: Spontaneous
  Country: US (occurrence: None)
  Receive Date: 20240520
  Receipt Date: 20240520
  Transmission Date: 20240716
  Serious: Yes (Hospitalization)
  Sender: FDA-Public Use
  Company Number: None

PATIENT
  Age: 81 Year
  Sex: Male

DRUGS (1)
  1. LENALIDOMIDE [Suspect]
     Active Substance: LENALIDOMIDE
     Indication: Plasma cell myeloma
     Dosage: 15MG QD ORAL
     Route: 048
     Dates: start: 20240314, end: 20240426

REACTIONS (4)
  - Asthenia [None]
  - Diarrhoea [None]
  - Therapy interrupted [None]
  - Hospice care [None]

NARRATIVE: CASE EVENT DATE: 20240419
